FAERS Safety Report 15897402 (Version 3)
Quarter: 2019Q1

REPORT INFORMATION
  Report Type: Report from Study
  Country: EC (occurrence: EC)
  Receive Date: 20190131
  Receipt Date: 20190318
  Transmission Date: 20190417
  Serious: Yes (Life-Threatening, Hospitalization)
  Sender: FDA-Public Use
  Company Number: PHHY2019EC018839

PATIENT
  Age: 57 Year
  Sex: Female
  Weight: 162 kg

DRUGS (4)
  1. SANDOSTATIN LAR DEPOT [Suspect]
     Active Substance: OCTREOTIDE ACETATE
     Indication: ACROMEGALY
     Dosage: 20 MG, QMO
     Route: 030
     Dates: start: 20160704
  2. SANDOSTATIN LAR DEPOT [Suspect]
     Active Substance: OCTREOTIDE ACETATE
     Dosage: 20 MG, QMO
     Route: 030
     Dates: start: 20190121
  3. IBUPROFEN. [Concomitant]
     Active Substance: IBUPROFEN
     Indication: PRODUCT USED FOR UNKNOWN INDICATION
     Dosage: UNK
     Route: 065
     Dates: start: 20190218
  4. SIMVASTATIN. [Suspect]
     Active Substance: SIMVASTATIN
     Indication: HEART RATE DECREASED
     Dosage: 1 DF, QD
     Route: 065
     Dates: start: 201703

REACTIONS (4)
  - Cholelithiasis [Recovered/Resolved]
  - Haemorrhage [Recovered/Resolved with Sequelae]
  - Coma [Recovered/Resolved with Sequelae]
  - Abdominal pain lower [Unknown]

NARRATIVE: CASE EVENT DATE: 20190112
